FAERS Safety Report 5378496-0 (Version None)
Quarter: 2007Q3

REPORT INFORMATION
  Report Type: 
  Country: None (occurrence: None)
  Receive Date: 20070705
  Receipt Date: 20070625
  Transmission Date: 20080115
  Serious: Yes (Hospitalization, Other)
  Sender: FDA-Public Use
  Company Number: US-JNJFOC-20070601615

PATIENT
  Sex: Female
  Weight: 60.78 kg

DRUGS (8)
  1. REMICADE [Suspect]
     Route: 042
     Dates: end: 20060601
  2. REMICADE [Suspect]
     Route: 042
     Dates: end: 20060601
  3. REMICADE [Suspect]
     Route: 042
     Dates: end: 20060601
  4. REMICADE [Suspect]
     Route: 042
     Dates: end: 20060601
  5. REMICADE [Suspect]
     Route: 042
     Dates: end: 20060601
  6. REMICADE [Suspect]
     Route: 042
     Dates: end: 20060601
  7. REMICADE [Suspect]
     Route: 042
     Dates: end: 20060601
  8. REMICADE [Suspect]
     Indication: CROHN'S DISEASE
     Route: 042
     Dates: end: 20060601

REACTIONS (2)
  - LUNG ADENOCARCINOMA [None]
  - NON-SMALL CELL LUNG CANCER [None]
